FAERS Safety Report 12318276 (Version 3)
Quarter: 2016Q3

REPORT INFORMATION
  Report Type: Spontaneous
  Country: US (occurrence: US)
  Receive Date: 20160429
  Receipt Date: 20160701
  Transmission Date: 20161109
  Serious: No
  Sender: FDA-Public Use
  Company Number: US-ACTELION PHARMACEUTICALS US, INC.-A-US2016-134745

PATIENT
  Age: 55 Year
  Sex: Male

DRUGS (5)
  1. ACITRETIN. [Concomitant]
     Active Substance: ACITRETIN
     Dosage: 10 MG, UNK
  2. MECLIZINE [Concomitant]
     Active Substance: MECLIZINE HYDROCHLORIDE
     Dosage: 25 MG, UNK
  3. VALCHLOR [Suspect]
     Active Substance: MECHLORETHAMINE
     Indication: MYCOSIS FUNGOIDES
     Dosage: UNK, QD
     Route: 061
     Dates: start: 20160301
  4. LANTUS [Concomitant]
     Active Substance: INSULIN GLARGINE
  5. ACITRETIN. [Concomitant]
     Active Substance: ACITRETIN
     Dosage: 20 MG, UNK

REACTIONS (8)
  - Vertigo [Unknown]
  - Viral infection [Unknown]
  - Application site pruritus [Not Recovered/Not Resolved]
  - Application site rash [Not Recovered/Not Resolved]
  - Dizziness [Unknown]
  - Malaise [Unknown]
  - Mycosis fungoides [Unknown]
  - Headache [Unknown]

NARRATIVE: CASE EVENT DATE: 201604
